FAERS Safety Report 20126566 (Version 2)
Quarter: 2021Q4

REPORT INFORMATION
  Report Type: Report from Study
  Country: IN (occurrence: IN)
  Receive Date: 20211129
  Receipt Date: 20211202
  Transmission Date: 20220303
  Serious: Yes (Other)
  Sender: FDA-Public Use
  Company Number: IN-BRISTOL-MYERS SQUIBB COMPANY-BMS-2021-127483

PATIENT
  Age: 77 Year
  Sex: Female
  Weight: 48 kg

DRUGS (5)
  1. APIXABAN [Suspect]
     Active Substance: APIXABAN
     Dosage: 2.5 MILLIGRAM, BID
     Route: 048
     Dates: start: 202102
  2. ASPIRIN [Concomitant]
     Active Substance: ASPIRIN
     Indication: Product used for unknown indication
     Dosage: 75 MILLIGRAM, QD
     Route: 065
  3. AZTOR [ATORVASTATIN CALCIUM] [Concomitant]
     Indication: Product used for unknown indication
     Dosage: 20 MILLIGRAM, QD
     Route: 065
  4. TELVAS [Concomitant]
     Indication: Product used for unknown indication
     Dosage: 40 MILLIGRAM, QD
     Route: 065
  5. DERIPHYLLIN RETARD [Concomitant]
     Indication: Product used for unknown indication
     Dosage: 150 MILLIGRAM, BID X 2 WEEKS
     Route: 065

REACTIONS (6)
  - Peripheral ischaemia [Unknown]
  - Embolism arterial [Unknown]
  - Atrial fibrillation [Unknown]
  - Hyperthyroidism [Unknown]
  - Bronchial hyperreactivity [Unknown]
  - Dyslipidaemia [Unknown]

NARRATIVE: CASE EVENT DATE: 20211104
